FAERS Safety Report 4954832-1 (Version None)
Quarter: 2006Q1

REPORT INFORMATION
  Report Type: 
  Country: None (occurrence: None)
  Receive Date: 20060327
  Receipt Date: 20050829
  Transmission Date: 20060701
  Serious: Yes (Hospitalization, Disabling)
  Sender: FDA-Public Use
  Company Number: US-MERCK-0508USA05064

PATIENT
  Age: 54 Year
  Sex: Male
  Weight: 107 kg

DRUGS (4)
  1. VIOXX [Suspect]
     Indication: PAIN
     Route: 048
     Dates: start: 20010615, end: 20020301
  2. VIOXX [Suspect]
     Route: 048
     Dates: start: 20010615, end: 20020301
  3. VIOXX [Suspect]
     Indication: ARTHRITIS
     Route: 048
     Dates: start: 20010615, end: 20020301
  4. VIOXX [Suspect]
     Route: 048
     Dates: start: 20010615, end: 20020301

REACTIONS (15)
  - ANXIETY [None]
  - BRAIN STEM INFARCTION [None]
  - CAROTID ARTERY STENOSIS [None]
  - CEREBROVASCULAR ACCIDENT [None]
  - DEHYDRATION [None]
  - DEPRESSION [None]
  - DIARRHOEA [None]
  - DIVERTICULITIS [None]
  - ERECTILE DYSFUNCTION [None]
  - HYPERTENSION [None]
  - HYPERTRIGLYCERIDAEMIA [None]
  - INTESTINAL RESECTION [None]
  - NAUSEA [None]
  - RESTLESS LEGS SYNDROME [None]
  - VOMITING [None]
